FAERS Safety Report 6532906-1 (Version None)
Quarter: 2009Q4

REPORT INFORMATION
  Report Type: 
  Country: None (occurrence: None)
  Receive Date: 20091231
  Receipt Date: 20091217
  Transmission Date: 20100525
  Serious: Yes (Other)
  Sender: FDA-Public Use
  Company Number: 2009S1009080

PATIENT
  Sex: Male

DRUGS (1)
  1. PHOSPHOSODA          FLAVOR NOT SPECIFIED [Suspect]
     Indication: COLONOSCOPY
     Dosage: 45 ML;PO
     Route: 048
     Dates: start: 20071009

REACTIONS (1)
  - RENAL IMPAIRMENT [None]
